FAERS Safety Report 5049482-5 (Version None)
Quarter: 2006Q3

REPORT INFORMATION
  Report Type: 
  Country: None (occurrence: None)
  Receive Date: 20060711
  Receipt Date: 20060711
  Transmission Date: 20061208
  Serious: Yes (Hospitalization)
  Sender: FDA-Public Use
  Company Number: None

PATIENT
  Age: 75 Year
  Sex: Male
  Weight: 93.441 kg

DRUGS (2)
  1. BACTRIM DS [Suspect]
     Indication: BACTERIAL INFECTION
     Dosage: 2 TABLETS  BID PO
     Route: 048
     Dates: start: 20060220, end: 20060228
  2. BACTRIM DS [Suspect]
     Indication: CELLULITIS
     Dosage: 2 TABLETS  BID PO
     Route: 048
     Dates: start: 20060220, end: 20060228

REACTIONS (5)
  - BONE MARROW DISORDER [None]
  - DYSPNOEA [None]
  - HAEMOPTYSIS [None]
  - SPLENOMEGALY [None]
  - THROMBOCYTOPENIA [None]
